FAERS Safety Report 11927182 (Version 1)
Quarter: 2016Q1

REPORT INFORMATION
  Report Type: Spontaneous
  Country: US (occurrence: US)
  Receive Date: 20160119
  Receipt Date: 20160119
  Transmission Date: 20160526
  Serious: Yes (Other)
  Sender: FDA-Public Use
  Company Number: PHHY2016US003826

PATIENT
  Age: 55 Year
  Sex: Male

DRUGS (1)
  1. IMATINIB [Suspect]
     Active Substance: IMATINIB
     Indication: LEIOMYOSARCOMA
     Route: 065

REACTIONS (5)
  - Muscle haemorrhage [Unknown]
  - Splenic rupture [Unknown]
  - Fluid retention [Unknown]
  - Peritoneal haemorrhage [Unknown]
  - Product use issue [Unknown]
